FAERS Safety Report 7581022 (Version 2)
Quarter: 2020Q4

REPORT INFORMATION
  Report Type: Spontaneous
  Country: BR (occurrence: BR)
  Receive Date: 20100910
  Receipt Date: 20201230
  Transmission Date: 20210114
  Serious: Yes (Other)
  Sender: FDA-Public Use
  Company Number: PHHY2010BR58119

PATIENT
  Age: 61 Year
  Sex: Male

DRUGS (8)
  1. DAPSONE. [Suspect]
     Active Substance: DAPSONE
     Indication: LEPROMATOUS LEPROSY
     Dosage: 100 MG/DAY
     Route: 065
  2. TACROLIMUS. [Concomitant]
     Active Substance: TACROLIMUS
     Indication: PRODUCT USED FOR UNKNOWN INDICATION
     Dosage: 6 MG/DAY
     Route: 065
  3. PREDNISONE. [Concomitant]
     Active Substance: PREDNISONE
     Indication: PRODUCT USED FOR UNKNOWN INDICATION
     Dosage: 0.5 MG/KG/DAY
     Route: 065
  4. CLOFAZIMINE [Suspect]
     Active Substance: CLOFAZIMINE
     Dosage: 50 MG/DAY
     Route: 065
  5. RIFAMPICIN [Suspect]
     Active Substance: RIFAMPIN
     Indication: LEPROMATOUS LEPROSY
     Dosage: 600 MG, UNK
     Route: 065
  6. MYCOPHENOLATE MOFETIL. [Concomitant]
     Active Substance: MYCOPHENOLATE MOFETIL
     Indication: PRODUCT USED FOR UNKNOWN INDICATION
     Dosage: 2 G/DAY
     Route: 065
  7. PREDNISONE. [Concomitant]
     Active Substance: PREDNISONE
     Dosage: 10 MG/DAY
     Route: 065
  8. CLOFAZIMINE [Suspect]
     Active Substance: CLOFAZIMINE
     Indication: LEPROMATOUS LEPROSY
     Dosage: 300 MG
     Route: 065

REACTIONS (6)
  - Skin lesion [Recovered/Resolved]
  - Hepatic enzyme increased [Recovered/Resolved]
  - Haemolytic anaemia [Recovered/Resolved]
  - Lepromatous leprosy [Recovered/Resolved]
  - Pain of skin [Recovered/Resolved]
  - Erythema [Recovered/Resolved]
